FAERS Safety Report 9929274 (Version 1)
Quarter: 2014Q1

REPORT INFORMATION
  Report Type: Spontaneous
  Country: FR (occurrence: None)
  Receive Date: 20140221
  Receipt Date: 20140221
  Transmission Date: 20141002
  Serious: Yes (Hospitalization)
  Sender: FDA-Public Use
  Company Number: SYM-2014-17455

PATIENT
  Age: 37 Year
  Sex: Female

DRUGS (5)
  1. FLAGYL (METRONIDAZOLE) (METRONIDAZOLE) [Suspect]
     Indication: INFECTION
     Dosage: 500 MG, 3 IN 1 D, ORAL
     Route: 048
     Dates: start: 20140106, end: 20140107
  2. PLAQUENIL (HYDROXYCHLOROQUINE SULFATE) (HYDROXYCHLOROQUINE SULFATE) [Concomitant]
  3. CORTANCYL (PREDNISONE) (PREDNISONE) [Concomitant]
  4. BACTRIM (BACTRIM) (SULPAMETHOXAZOLE, TRIMETHOPRIM) [Concomitant]
  5. ROCEPHINE (CEFTRIAXONE SODIUM) (CEFTRIAXONE SODIUM) [Concomitant]

REACTIONS (12)
  - Drug reaction with eosinophilia and systemic symptoms [None]
  - Drug ineffective [None]
  - Klebsiella infection [None]
  - Interstitial lung disease [None]
  - Lung abscess [None]
  - Diarrhoea [None]
  - Hypotension [None]
  - Troponin increased [None]
  - Blood creatine phosphokinase increased [None]
  - C-reactive protein increased [None]
  - Myocarditis [None]
  - Hilar lymphadenopathy [None]
